FAERS Safety Report 20023591 (Version 1)
Quarter: 2021Q4

REPORT INFORMATION
  Report Type: Spontaneous
  Country: US (occurrence: US)
  Receive Date: 20211102
  Receipt Date: 20211102
  Transmission Date: 20220303
  Serious: Yes (Other)
  Sender: FDA-Public Use
  Company Number: US-SA-SAC20211027001644

PATIENT
  Age: 68 Year
  Sex: Female

DRUGS (1)
  1. ZANTAC [Suspect]
     Active Substance: RANITIDINE HYDROCHLORIDE
     Indication: Gastric ulcer
     Dosage: 75 MG, PRN
     Dates: start: 201704, end: 201805

REACTIONS (2)
  - Hepatic cancer stage II [Unknown]
  - Colon cancer stage III [Unknown]

NARRATIVE: CASE EVENT DATE: 20180701
